FAERS Safety Report 5916814-2 (Version None)
Quarter: 2008Q4

REPORT INFORMATION
  Report Type: 
  Country: None (occurrence: None)
  Receive Date: 20081013
  Receipt Date: 20081003
  Transmission Date: 20090506
  Serious: Yes (Death, Hospitalization)
  Sender: FDA-Public Use
  Company Number: US-PFIZER INC-2008083046

PATIENT
  Age: 58 Year
  Sex: Male
  Weight: 87.3 kg

DRUGS (6)
  1. SUTENT [Suspect]
     Indication: THYROID CANCER
     Route: 048
     Dates: start: 20070807, end: 20080219
  2. AMLODIPINE [Concomitant]
  3. ACETYLSALICYLIC ACID SRT [Concomitant]
  4. CALCIUM [Concomitant]
  5. VITAMIN D [Concomitant]
  6. LEVOTHYROXINE SODIUM [Concomitant]

REACTIONS (1)
  - HEPATIC FAILURE [None]
